FAERS Safety Report 6186255-4 (Version None)
Quarter: 2009Q2

REPORT INFORMATION
  Report Type: 
  Country: None (occurrence: None)
  Receive Date: 20090507
  Receipt Date: 20090507
  Transmission Date: 20091009
  Serious: Yes (Hospitalization)
  Sender: FDA-Public Use
  Company Number: None

PATIENT
  Age: 62 Year
  Sex: Male
  Weight: 104.77 kg

DRUGS (1)
  1. IRINOTECAN HCL [Suspect]
     Dosage: 237 MG QWEEK IV
     Route: 042
     Dates: start: 20090318, end: 20090415

REACTIONS (3)
  - DIARRHOEA [None]
  - RASH [None]
  - SWELLING [None]
